FAERS Safety Report 5205372-6 (Version None)
Quarter: 2007Q1

REPORT INFORMATION
  Report Type: 
  Country: None (occurrence: None)
  Receive Date: 20070110
  Receipt Date: 20061228
  Transmission Date: 20070707
  Serious: Yes (Hospitalization, Disabling)
  Sender: FDA-Public Use
  Company Number: JP-MERCK-0205USA02283

PATIENT
  Age: 59 Year
  Sex: Female
  Weight: 58 kg

DRUGS (5)
  1. FOSAMAX [Suspect]
     Indication: OSTEOPOROSIS
     Route: 048
     Dates: start: 20011116, end: 20020428
  2. PREDNISOLONE [Concomitant]
     Indication: SYSTEMIC SCLEROSIS
     Route: 065
     Dates: start: 20020401
  3. TEPRENONE [Concomitant]
     Indication: GASTRITIS
     Route: 065
  4. CALCITRIOL [Concomitant]
     Indication: SYSTEMIC SCLEROSIS
     Route: 048
     Dates: start: 20010227
  5. GASTER D [Suspect]
     Indication: GASTRITIS
     Route: 048
     Dates: start: 20010405, end: 20020208

REACTIONS (1)
  - THROMBOCYTOPENIA [None]
